FAERS Safety Report 10273867 (Version 1)
Quarter: 2014Q2

REPORT INFORMATION
  Report Type: Spontaneous
  Country: US (occurrence: None)
  Receive Date: 20140630
  Receipt Date: 20140630
  Transmission Date: 20141212
  Serious: Yes (Other)
  Sender: FDA-Public Use
  Company Number: None

PATIENT
  Age: 48 Year
  Sex: Male
  Weight: 189.6 kg

DRUGS (1)
  1. LOSARTAN WITH HCTZ 100 MG WITH 25 MG AUROBINDE [Suspect]
     Indication: HYPERTENSION
     Route: 048
     Dates: start: 20140111, end: 20140606

REACTIONS (3)
  - Arthralgia [None]
  - Myalgia [None]
  - Muscle spasms [None]
